FAERS Safety Report 5732409-8 (Version None)
Quarter: 2008Q2

REPORT INFORMATION
  Report Type: 
  Country: None (occurrence: None)
  Receive Date: 20080507
  Receipt Date: 20080422
  Transmission Date: 20081010
  Serious: Yes (Death)
  Sender: FDA-Public Use
  Company Number: B0518987A

PATIENT

DRUGS (1)
  1. PROPRANOLOL  HYDROCHLORIDE (FORMULATION UNKNOWN) (GENERIC) (PROPRANOLO [Suspect]

REACTIONS (3)
  - CARDIAC ARREST [None]
  - COMPLETED SUICIDE [None]
  - POISONING [None]
